FAERS Safety Report 6654804-5 (Version None)
Quarter: 2010Q1

REPORT INFORMATION
  Report Type: 
  Country: None (occurrence: None)
  Receive Date: 20100329
  Receipt Date: 20100318
  Transmission Date: 20100710
  Serious: Yes (Hospitalization)
  Sender: FDA-Public Use
  Company Number: US-BIOGENIDEC-2009BI022213

PATIENT
  Age: 57 Year
  Sex: Female

DRUGS (16)
  1. TYSABRI [Suspect]
     Indication: MULTIPLE SCLEROSIS
     Route: 042
     Dates: start: 20071121, end: 20091028
  2. NEURONTIN [Concomitant]
     Route: 048
  3. TEGRETOL [Concomitant]
     Route: 048
  4. WELLBUTRIN XL [Concomitant]
     Route: 048
  5. VALIUM [Concomitant]
     Route: 048
  6. MIDRIN [Concomitant]
     Indication: HEADACHE
  7. PAXIL [Concomitant]
     Route: 048
  8. NITROFURANTOIN [Concomitant]
     Route: 048
  9. R-TANNATE [Concomitant]
  10. LOVASTATIN [Concomitant]
     Route: 048
  11. LOVASTATIN [Concomitant]
     Route: 048
  12. VITAMIN D [Concomitant]
  13. AMBIEN [Concomitant]
     Indication: SLEEP DISORDER
  14. PANTOPRAZOLE [Concomitant]
     Route: 048
  15. LUNESTA [Concomitant]
     Route: 048
  16. CALTRATE D [Concomitant]
     Route: 048

REACTIONS (12)
  - ACUTE MYOCARDIAL INFARCTION [None]
  - BLOOD CALCIUM DECREASED [None]
  - BREAST ENLARGEMENT [None]
  - CONTUSION [None]
  - DIARRHOEA [None]
  - EXOSTOSIS [None]
  - FATIGUE [None]
  - HUMERUS FRACTURE [None]
  - MAMMOGRAM ABNORMAL [None]
  - MUSCULOSKELETAL PAIN [None]
  - VITAMIN D DECREASED [None]
  - WEIGHT INCREASED [None]
